FAERS Safety Report 15546013 (Version 6)
Quarter: 2018Q4

REPORT INFORMATION
  Report Type: Report from Study
  Country: US (occurrence: US)
  Receive Date: 20181024
  Receipt Date: 20181119
  Transmission Date: 20190205
  Serious: Yes (Hospitalization, Other)
  Sender: FDA-Public Use
  Company Number: US-ALEXION PHARMACEUTICALS INC.-A201813744

PATIENT
  Age: 67 Year
  Sex: Male
  Weight: 113 kg

DRUGS (3)
  1. SOLIRIS [Suspect]
     Active Substance: ECULIZUMAB
     Indication: ATYPICAL HAEMOLYTIC URAEMIC SYNDROME
     Dosage: UNK, QW
     Route: 042
     Dates: start: 20181016
  2. RIFAMPIN. [Concomitant]
     Active Substance: RIFAMPIN
     Dosage: 600 MG, UNK
     Route: 065
  3. RIFAMPIN. [Concomitant]
     Active Substance: RIFAMPIN
     Indication: PROPHYLAXIS
     Dosage: 600 MG, BID
     Route: 065

REACTIONS (13)
  - Platelet count decreased [Unknown]
  - Epstein-Barr virus test positive [Unknown]
  - Haemoglobin decreased [Unknown]
  - Blood urea increased [Unknown]
  - Blood lactate dehydrogenase increased [Unknown]
  - Pyrexia [Unknown]
  - Blood creatinine increased [Unknown]
  - Haematocrit decreased [Unknown]
  - Haptoglobin decreased [Unknown]
  - Complement factor C3 decreased [Unknown]
  - Chills [Unknown]
  - Complement factor C4 decreased [Unknown]
  - Blood bilirubin increased [Unknown]

NARRATIVE: CASE EVENT DATE: 20181017
